FAERS Safety Report 9558817 (Version 4)
Quarter: 2014Q2

REPORT INFORMATION
  Report Type: Report from Study
  Country: DE (occurrence: DE)
  Receive Date: 20130926
  Receipt Date: 20140513
  Transmission Date: 20141212
  Serious: Yes (Death)
  Sender: FDA-Public Use
  Company Number: DE-ROCHE-1273790

PATIENT
  Age: 78 Year
  Sex: Male

DRUGS (1)
  1. VEMURAFENIB [Suspect]
     Indication: METASTATIC MALIGNANT MELANOMA
     Dosage: ON /SEP/2013, MOST RECENT DOSE OF VEMURAFENIB (960 MG)
     Route: 048
     Dates: start: 20130816

REACTIONS (1)
  - Bronchopneumonia [Fatal]
